FAERS Safety Report 6498760-1 (Version None)
Quarter: 2009Q4

REPORT INFORMATION
  Report Type: 
  Country: None (occurrence: None)
  Receive Date: 20091215
  Receipt Date: 20091208
  Transmission Date: 20100525
  Serious: Yes (Hospitalization)
  Sender: FDA-Public Use
  Company Number: PHHO2009BE13085

PATIENT
  Sex: Male

DRUGS (2)
  1. AFINITOR [Suspect]
     Indication: METASTATIC RENAL CELL CARCINOMA
     Dosage: 10 MG/DAY
     Route: 048
     Dates: start: 20081106, end: 20091020
  2. AFINITOR [Suspect]
     Dosage: UNK
     Route: 048
     Dates: start: 20091028

REACTIONS (5)
  - ASCITES [None]
  - DYSPNOEA [None]
  - FLUID RETENTION [None]
  - OEDEMA [None]
  - PLEURAL EFFUSION [None]
